FAERS Safety Report 18219289 (Version 1)
Quarter: 2020Q3

REPORT INFORMATION
  Report Type: Spontaneous
  Country: LV (occurrence: LV)
  Receive Date: 20200901
  Receipt Date: 20200901
  Transmission Date: 20201103
  Serious: Yes (Other)
  Sender: FDA-Public Use
  Company Number: LV-009507513-2008LVA011250

PATIENT
  Age: 38 Year
  Sex: Female

DRUGS (1)
  1. KEYTRUDA [Suspect]
     Active Substance: PEMBROLIZUMAB
     Indication: EXTRA-OSSEOUS EWING^S SARCOMA METASTATIC
     Dosage: 200 MILLIGRAM, Q3W
     Dates: start: 20200713

REACTIONS (2)
  - Off label use [Unknown]
  - Pleurisy [Unknown]

NARRATIVE: CASE EVENT DATE: 2020
